FAERS Safety Report 23758513 (Version 1)
Quarter: 2024Q2

REPORT INFORMATION
  Report Type: Spontaneous
  Country: US (occurrence: US)
  Receive Date: 20240418
  Receipt Date: 20240418
  Transmission Date: 20240716
  Serious: Yes (Other)
  Sender: FDA-Public Use
  Company Number: US-TEVA-VS-3185054

PATIENT
  Age: 50 Year
  Sex: Male

DRUGS (13)
  1. CETIRIZINE [Suspect]
     Active Substance: CETIRIZINE HYDROCHLORIDE
     Indication: Solar urticaria
     Route: 048
  2. CETIRIZINE [Suspect]
     Active Substance: CETIRIZINE HYDROCHLORIDE
     Indication: Solar urticaria
     Route: 048
  3. CETIRIZINE [Suspect]
     Active Substance: CETIRIZINE HYDROCHLORIDE
     Indication: Solar urticaria
     Route: 048
  4. CETIRIZINE [Suspect]
     Active Substance: CETIRIZINE HYDROCHLORIDE
     Indication: Solar urticaria
     Dosage: 60-80MG
     Route: 048
  5. DUPILUMAB [Concomitant]
     Active Substance: DUPILUMAB
     Indication: Solar urticaria
     Dosage: LOADING DOSE
     Route: 065
  6. DUPILUMAB [Concomitant]
     Active Substance: DUPILUMAB
     Indication: Solar urticaria
     Route: 065
  7. FAMOTIDINE [Suspect]
     Active Substance: FAMOTIDINE
     Indication: Solar urticaria
     Route: 065
  8. MONTELUKAST [Suspect]
     Active Substance: MONTELUKAST SODIUM
     Indication: Solar urticaria
     Route: 065
  9. LEVOCETIRIZINE [Suspect]
     Active Substance: LEVOCETIRIZINE
     Indication: Solar urticaria
     Route: 048
  10. OMALIZUMAB [Suspect]
     Active Substance: OMALIZUMAB
     Indication: Solar urticaria
     Route: 065
  11. OMALIZUMAB [Suspect]
     Active Substance: OMALIZUMAB
     Indication: Solar urticaria
     Route: 065
  12. RANITIDINE [Suspect]
     Active Substance: RANITIDINE
     Indication: Solar urticaria
     Route: 065
  13. HYDROXYZINE [Suspect]
     Active Substance: HYDROXYZINE HYDROCHLORIDE
     Indication: Solar urticaria
     Route: 048

REACTIONS (2)
  - Rebound effect [Unknown]
  - Drug ineffective [Unknown]
